FAERS Safety Report 8503277-6 (Version None)
Quarter: 2012Q3

REPORT INFORMATION
  Report Type: 
  Country: None (occurrence: None)
  Receive Date: 20120711
  Receipt Date: 20120702
  Transmission Date: 20120928
  Serious: Yes (Hospitalization)
  Sender: FDA-Public Use
  Company Number: FR-GILEAD-2012-0056725

PATIENT
  Sex: Female

DRUGS (2)
  1. VITAMIN D [Concomitant]
     Indication: OSTEOPOROSIS
     Dosage: 1 DF, Q1MONTH
     Route: 048
     Dates: start: 20100312
  2. ATRIPLA [Suspect]
     Indication: HIV INFECTION
     Dosage: 1 DF, UNK
     Route: 048
     Dates: start: 20101201

REACTIONS (2)
  - MUSCLE DISORDER [None]
  - MUSCLE RUPTURE [None]
